FAERS Safety Report 10271098 (Version 2)
Quarter: 2014Q3

REPORT INFORMATION
  Report Type: Spontaneous
  Country: US (occurrence: US)
  Receive Date: 20140701
  Receipt Date: 20140701
  Transmission Date: 20150326
  Serious: Yes (Hospitalization, Other)
  Sender: FDA-Public Use
  Company Number: US-009507513-2010SP057046

PATIENT
  Sex: Female
  Weight: 95.71 kg

DRUGS (2)
  1. FLUOXETINE [Concomitant]
     Active Substance: FLUOXETINE\FLUOXETINE HYDROCHLORIDE
     Indication: DEPRESSION
  2. NUVARING [Suspect]
     Active Substance: ETHINYL ESTRADIOL\ETONOGESTREL
     Indication: CONTRACEPTION
     Route: 067
     Dates: start: 20060209, end: 200611

REACTIONS (8)
  - Visual field defect [Unknown]
  - Hypercoagulation [Unknown]
  - Migraine [Not Recovered/Not Resolved]
  - Intracranial pressure increased [Unknown]
  - Cerebral venous thrombosis [Recovered/Resolved with Sequelae]
  - Emotional disorder [Unknown]
  - Cerebral haemorrhage [Recovered/Resolved with Sequelae]
  - Mental disorder [Unknown]

NARRATIVE: CASE EVENT DATE: 200611
